FAERS Safety Report 16723551 (Version 2)
Quarter: 2019Q3

REPORT INFORMATION
  Report Type: Spontaneous
  Country: US (occurrence: US)
  Receive Date: 20190821
  Receipt Date: 20190821
  Transmission Date: 20191005
  Serious: Yes (Hospitalization)
  Sender: FDA-Public Use
  Company Number: US-CELGENEUS-USA-20190805072

PATIENT
  Age: 68 Year
  Sex: Male

DRUGS (3)
  1. THALOMID [Suspect]
     Active Substance: THALIDOMIDE
     Dosage: 100 MILLIGRAM
     Route: 048
     Dates: start: 201908
  2. THALOMID [Suspect]
     Active Substance: THALIDOMIDE
     Indication: OFF LABEL USE
     Dosage: 50-150
     Route: 048
     Dates: start: 201706
  3. THALOMID [Suspect]
     Active Substance: THALIDOMIDE
     Indication: LICHEN PLANUS
     Dosage: 100 MILLIGRAM
     Route: 048
     Dates: start: 201605

REACTIONS (4)
  - Respiration abnormal [Unknown]
  - Full blood count decreased [Unknown]
  - Renal disorder [Unknown]
  - Fluid retention [Unknown]

NARRATIVE: CASE EVENT DATE: 20190807
